FAERS Safety Report 14951322 (Version 1)
Quarter: 2018Q2

REPORT INFORMATION
  Report Type: Spontaneous
  Country: SK (occurrence: SK)
  Receive Date: 20180530
  Receipt Date: 20180530
  Transmission Date: 20180711
  Serious: Yes (Hospitalization)
  Sender: FDA-Public Use
  Company Number: SK-TEVA-2018-SK-899362

PATIENT
  Age: 70 Year
  Sex: Male

DRUGS (10)
  1. DABIGATRAN [Suspect]
     Active Substance: DABIGATRAN
     Indication: PROPHYLAXIS
     Dosage: 2 X 150 MG
  2. URAPIDIL [Suspect]
     Active Substance: URAPIDIL
     Dosage: 60-0-60
  3. METFORMIN [Suspect]
     Active Substance: METFORMIN HYDROCHLORIDE
     Dosage: 850-0-850
  4. TELMISARTAN. [Suspect]
     Active Substance: TELMISARTAN
     Dosage: 80-0-0
     Route: 065
  5. SPIRONOLACTONE. [Suspect]
     Active Substance: SPIRONOLACTONE
     Dosage: 25-0-0
  6. DOXAZOSIN [Suspect]
     Active Substance: DOXAZOSIN\DOXAZOSIN MESYLATE
     Dosage: 0-0-4
  7. ATORVASTATIN [Suspect]
     Active Substance: ATORVASTATIN
     Dosage: 0-0-25
  8. BISOPROLOL [Suspect]
     Active Substance: BISOPROLOL
     Dosage: 5-0-0
  9. NITRENDIPINE [Suspect]
     Active Substance: NITRENDIPINE
     Dosage: 0-0-20
  10. AMIODARONE [Suspect]
     Active Substance: AMIODARONE
     Dosage: 200-0-0

REACTIONS (5)
  - Dysuria [Unknown]
  - Haematuria [Recovered/Resolved]
  - Postrenal failure [Recovering/Resolving]
  - Pollakiuria [Unknown]
  - Asthenia [Unknown]
